FAERS Safety Report 9607722 (Version 1)
Quarter: 2013Q4

REPORT INFORMATION
  Report Type: Spontaneous
  Country: US (occurrence: None)
  Receive Date: 20131008
  Receipt Date: 20131008
  Transmission Date: 20140711
  Serious: No
  Sender: FDA-Public Use
  Company Number: None

PATIENT
  Age: 43 Year
  Sex: Male
  Weight: 112.04 kg

DRUGS (2)
  1. DIPHENHYDRAMINE [Suspect]
     Indication: HYPERSENSITIVITY
     Route: 042
     Dates: start: 20131007
  2. DIPHENHYDRAMINE [Suspect]
     Indication: CONTRAST MEDIA ALLERGY
     Route: 042
     Dates: start: 20131007

REACTIONS (1)
  - Tremor [None]
